FAERS Safety Report 4325467-9 (Version None)
Quarter: 2004Q1

REPORT INFORMATION
  Report Type: 
  Country: None (occurrence: None)
  Receive Date: 20040326
  Receipt Date: 20040326
  Transmission Date: 20041129
  Serious: Yes (Other)
  Sender: FDA-Public Use
  Company Number: None

PATIENT
  Age: 47 Year
  Sex: Female
  Weight: 76.2043 kg

DRUGS (1)
  1. ALDACTONE [Suspect]
     Indication: HYPOKALAEMIA
     Dosage: ORAL-? DOSE
     Route: 048
     Dates: start: 19860101

REACTIONS (6)
  - ADENOMA BENIGN [None]
  - BREAST CANCER [None]
  - BREAST PAIN [None]
  - CERVICAL POLYP [None]
  - NEOPLASM [None]
  - UTERINE POLYP [None]
